FAERS Safety Report 19710121 (Version 2)
Quarter: 2021Q3

REPORT INFORMATION
  Report Type: Report from Study
  Country: US (occurrence: US)
  Receive Date: 20210817
  Receipt Date: 20210826
  Transmission Date: 20211014
  Serious: Yes (Hospitalization)
  Sender: FDA-Public Use
  Company Number: US-PFIZER INC-202101008024

PATIENT
  Age: 2 Year
  Sex: Male
  Weight: 11.7 kg

DRUGS (3)
  1. VINCRISTINE SULFATE. [Suspect]
     Active Substance: VINCRISTINE SULFATE
     Dosage: 1.5MG/M2 OR PER PROTOCOL D1,8,15
     Dates: start: 20210610, end: 20210624
  2. IRINOTECAN HCL [Suspect]
     Active Substance: IRINOTECAN HYDROCHLORIDE
     Dosage: 50MG/M2 OR PER PROTOCOL ON D1?5
     Dates: start: 20210610, end: 20210624
  3. TEMSIROLIMUS. [Suspect]
     Active Substance: TEMSIROLIMUS
     Dosage: 15MG/M2 OR PER PROTOCOL D1,8,15
     Dates: start: 20210610, end: 20210624

REACTIONS (1)
  - Mucosal inflammation [Recovered/Resolved]

NARRATIVE: CASE EVENT DATE: 20210627
